FAERS Safety Report 7378478-3 (Version None)
Quarter: 2011Q1

REPORT INFORMATION
  Report Type: 
  Country: None (occurrence: None)
  Receive Date: 20110328
  Receipt Date: 20110316
  Transmission Date: 20110831
  Serious: No
  Sender: FDA-Public Use
  Company Number: HU-ELI_LILLY_AND_COMPANY-HU201103002682

PATIENT
  Age: 50 Year
  Sex: Male

DRUGS (1)
  1. FORTEO [Suspect]
     Dosage: 20UG/80UL, DAILY (1/D)
     Route: 058
     Dates: start: 20101101, end: 20110201

REACTIONS (1)
  - NO ADVERSE EVENT [None]
